FAERS Safety Report 18823436 (Version 1)
Quarter: 2021Q1

REPORT INFORMATION
  Report Type: Spontaneous
  Country: AU (occurrence: AU)
  Receive Date: 20210202
  Receipt Date: 20210202
  Transmission Date: 20210419
  Serious: Yes (Other)
  Sender: FDA-Public Use
  Company Number: AU-AMERICAN REGENT INC-2021000275

PATIENT
  Age: 32 Year
  Sex: Male

DRUGS (1)
  1. FERINJECT [Suspect]
     Active Substance: FERRIC CARBOXYMALTOSE
     Indication: IRON DEFICIENCY ANAEMIA
     Dosage: UNK, APPROXIMATELY 40 ML WERE INFUSED
     Route: 042
     Dates: start: 20200814, end: 20200814

REACTIONS (5)
  - Lacrimation increased [Recovered/Resolved]
  - Sneezing [Recovered/Resolved]
  - Periorbital oedema [Recovered/Resolved]
  - Ocular hyperaemia [Recovered/Resolved]
  - Eye pruritus [Recovered/Resolved]

NARRATIVE: CASE EVENT DATE: 20200814
